FAERS Safety Report 9855834 (Version 2)
Quarter: 2014Q3

REPORT INFORMATION
  Report Type: Spontaneous
  Country: US (occurrence: US)
  Receive Date: 20140130
  Receipt Date: 20140812
  Transmission Date: 20150326
  Serious: Yes (Hospitalization, Other)
  Sender: FDA-Public Use
  Company Number: US-009507513-1401USA013591

PATIENT
  Sex: Female
  Weight: 59.86 kg

DRUGS (1)
  1. NUVARING [Suspect]
     Active Substance: ETHINYL ESTRADIOL\ETONOGESTREL
     Indication: CONTRACEPTION
     Dosage: UNK
     Route: 067
     Dates: start: 20100208, end: 20120304

REACTIONS (5)
  - Blood homocysteine decreased [Unknown]
  - Hyponatraemia [Recovered/Resolved]
  - Protein S decreased [Unknown]
  - Pulmonary embolism [Unknown]
  - Menorrhagia [Unknown]

NARRATIVE: CASE EVENT DATE: 20120304
